FAERS Safety Report 17004370 (Version 1)
Quarter: 2019Q4

REPORT INFORMATION
  Report Type: Spontaneous
  Country: FR (occurrence: FR)
  Receive Date: 20191107
  Receipt Date: 20191107
  Transmission Date: 20200122
  Serious: Yes (Other)
  Sender: FDA-Public Use
  Company Number: FR-MYLANLABS-2019M1088349

PATIENT
  Age: 64 Year
  Sex: Male
  Weight: 75 kg

DRUGS (1)
  1. FEBUXOSTAT MYLAN 80 MG FILM-COATED TABLET [Suspect]
     Active Substance: FEBUXOSTAT
     Indication: GOUT
     Dosage: 1 DOSAGE FORM, QD
     Route: 048
     Dates: start: 20190725, end: 20190906

REACTIONS (3)
  - Urinary tract disorder [Unknown]
  - Erectile dysfunction [Recovering/Resolving]
  - Product substitution issue [Unknown]

NARRATIVE: CASE EVENT DATE: 20190805
